FAERS Safety Report 25352815 (Version 1)
Quarter: 2025Q2

REPORT INFORMATION
  Report Type: Spontaneous
  Country: JP (occurrence: JP)
  Receive Date: 20250523
  Receipt Date: 20250523
  Transmission Date: 20250716
  Serious: Yes (Life-Threatening, Hospitalization, Other)
  Sender: GALPHARM INTERNATIONAL
  Company Number: JP-MLMSERVICE-20200707-2363783-1

PATIENT
  Age: 58 Year
  Sex: Female

DRUGS (7)
  1. FAMOTIDINE [Suspect]
     Active Substance: FAMOTIDINE
     Indication: Anxiety
     Route: 048
  2. EPIRUBICIN [Suspect]
     Active Substance: EPIRUBICIN
     Indication: Breast cancer stage III
     Route: 042
  3. CYCLOPHOSPHAMIDE [Suspect]
     Active Substance: CYCLOPHOSPHAMIDE
     Indication: Breast cancer stage III
     Route: 042
  4. ALPRAZOLAM [Suspect]
     Active Substance: ALPRAZOLAM
     Indication: Anxiety
     Route: 065
  5. SULPIRIDE [Suspect]
     Active Substance: SULPIRIDE
     Indication: Anxiety
     Route: 065
  6. TIZANIDINE [Suspect]
     Active Substance: TIZANIDINE
     Indication: Anxiety
     Route: 065
  7. PEGFILGRASTIM [Concomitant]
     Active Substance: PEGFILGRASTIM
     Indication: Breast cancer stage III
     Route: 058

REACTIONS (8)
  - Atrioventricular block complete [Recovering/Resolving]
  - Rhythm idioventricular [Recovering/Resolving]
  - Torsade de pointes [Recovering/Resolving]
  - Ventricular extrasystoles [Recovering/Resolving]
  - Pulmonary congestion [Unknown]
  - Anaemia [Unknown]
  - Hypocalcaemia [Unknown]
  - Hypokalaemia [Recovered/Resolved]
